FAERS Safety Report 25078841 (Version 1)
Quarter: 2025Q1

REPORT INFORMATION
  Report Type: Report from Study
  Country: US (occurrence: None)
  Receive Date: 20250314
  Receipt Date: 20250314
  Transmission Date: 20250408
  Serious: Yes (Hospitalization, Other)
  Sender: ALEXION PHARMACEUTICALS
  Company Number: US-ALXN-A202308789AA

PATIENT
  Age: 75 Year

DRUGS (3)
  1. STRENSIQ [Suspect]
     Active Substance: ASFOTASE ALFA
     Indication: Hypophosphatasia
     Dosage: 160 MG, Q3W
  2. STRENSIQ [Suspect]
     Active Substance: ASFOTASE ALFA
     Dosage: UNK, SIX TIMES/WEEK
     Route: 065
  3. COLLAGEN [Suspect]
     Active Substance: COLLAGEN
     Route: 065

REACTIONS (13)
  - Syncope [Unknown]
  - Dizziness [Unknown]
  - Blood pressure increased [Unknown]
  - Anxiety [Recovering/Resolving]
  - Panic disorder [Recovering/Resolving]
  - Dehydration [Unknown]
  - Off label use [Unknown]
  - Inadvertent injection air bubble [Unknown]
  - Underdose [Unknown]
  - Depression [Unknown]
  - Injection site pain [Unknown]
  - Injection site discolouration [Recovered/Resolved]
  - Hot flush [Unknown]
